FAERS Safety Report 7732026-4 (Version None)
Quarter: 2011Q3

REPORT INFORMATION
  Report Type: 
  Country: None (occurrence: None)
  Receive Date: 20110906
  Receipt Date: 20110823
  Transmission Date: 20111222
  Serious: Yes (Hospitalization)
  Sender: FDA-Public Use
  Company Number: NO-MYLANLABS-2011S1018008

PATIENT
  Age: 42 Year
  Sex: Female
  Weight: 87 kg

DRUGS (10)
  1. DALTEPARIN SODIUM [Suspect]
  2. PROMETHAZINE [Suspect]
     Indication: OVERDOSE
     Route: 048
  3. CITALOPRAM [Suspect]
     Indication: SUICIDE ATTEMPT
     Dosage: SMALL AMOUNTS, ACCORDING TO THE PATIENT
     Route: 048
  4. PROMETHAZINE [Suspect]
     Indication: SUICIDE ATTEMPT
     Route: 048
  5. DALTEPARIN SODIUM [Suspect]
  6. DALTEPARIN SODIUM [Suspect]
     Indication: OVERDOSE
     Route: 058
  7. LAMOTRIGINE [Suspect]
     Indication: SUICIDE ATTEMPT
     Dosage: SMALL AMOUNTS, ACCORDING TO THE PATIENT
     Route: 048
  8. DALTEPARIN SODIUM [Suspect]
     Indication: SUICIDE ATTEMPT
     Route: 058
  9. DALTEPARIN SODIUM [Suspect]
     Indication: EMBOLISM
     Route: 058
  10. DALTEPARIN SODIUM [Suspect]

REACTIONS (5)
  - ACTIVATED PARTIAL THROMBOPLASTIN TIME PROLONGED [None]
  - SOMNOLENCE [None]
  - OVERDOSE [None]
  - COAGULOPATHY [None]
  - SUICIDE ATTEMPT [None]
